FAERS Safety Report 7058651-4 (Version None)
Quarter: 2010Q4

REPORT INFORMATION
  Report Type: 
  Country: None (occurrence: None)
  Receive Date: 20101022
  Receipt Date: 20101018
  Transmission Date: 20110411
  Serious: Yes (Death)
  Sender: FDA-Public Use
  Company Number: PHHY2010TR69124

PATIENT

DRUGS (1)
  1. TASIGNA [Suspect]
     Dosage: MATRENAL DOSE: 800 MG/D, ORAL
     Route: 064

REACTIONS (2)
  - DEATH NEONATAL [None]
  - DRUG EXPOSURE DURING PREGNANCY [None]
